FAERS Safety Report 23608091 (Version 5)
Quarter: 2024Q4

REPORT INFORMATION
  Report Type: Report from Study
  Country: US (occurrence: US)
  Receive Date: 20240307
  Receipt Date: 20241101
  Transmission Date: 20250115
  Serious: Yes (Other)
  Sender: JAZZ
  Company Number: US-JAZZ PHARMACEUTICALS-2023-US-006976

PATIENT
  Age: 50 Year
  Sex: Male

DRUGS (8)
  1. XYWAV [Suspect]
     Active Substance: CALCIUM OXYBATE\MAGNESIUM OXYBATE\POTASSIUM OXYBATE\SODIUM OXYBATE
     Indication: Hypersomnia
     Dosage: 4.5 GRAM, QD
  2. XYWAV [Suspect]
     Active Substance: CALCIUM OXYBATE\MAGNESIUM OXYBATE\POTASSIUM OXYBATE\SODIUM OXYBATE
     Dosage: 6 GRAM QD
     Route: 048
  3. XYWAV [Suspect]
     Active Substance: CALCIUM OXYBATE\MAGNESIUM OXYBATE\POTASSIUM OXYBATE\SODIUM OXYBATE
     Dosage: UNK
  4. PRILOSEC [Suspect]
     Active Substance: OMEPRAZOLE MAGNESIUM
     Indication: Gastrooesophageal reflux disease
  5. METOPROLOL [Suspect]
     Active Substance: METOPROLOL
     Indication: Product used for unknown indication
  6. TADALAFIL [Concomitant]
     Active Substance: TADALAFIL
     Indication: Product used for unknown indication
  7. FOLIC ACID [Concomitant]
     Active Substance: FOLIC ACID
     Indication: Product used for unknown indication
  8. PYGEUM [Concomitant]
     Active Substance: PYGEUM
     Indication: Product used for unknown indication

REACTIONS (29)
  - Cholelithiasis [Recovering/Resolving]
  - Hepatic cyst [Unknown]
  - Brain fog [Unknown]
  - Urinary hesitation [Unknown]
  - Prostatomegaly [Unknown]
  - Fatigue [Unknown]
  - Somnolence [Unknown]
  - Abnormal dreams [Unknown]
  - Back pain [Recovered/Resolved]
  - Hepatic steatosis [Unknown]
  - Pollakiuria [Unknown]
  - Overweight [Unknown]
  - Mole excision [Unknown]
  - Hepatic function abnormal [Unknown]
  - Depression [Unknown]
  - Feeling abnormal [Unknown]
  - Middle insomnia [Unknown]
  - Vitamin D decreased [Unknown]
  - Vitamin B12 decreased [Unknown]
  - Hiatus hernia [Unknown]
  - Gastrooesophageal reflux disease [Unknown]
  - Condition aggravated [Unknown]
  - Dysphagia [Recovered/Resolved]
  - Rash erythematous [Unknown]
  - Dyspnoea [Unknown]
  - Chest pain [Unknown]
  - Product dose omission issue [Unknown]
  - Therapeutic product effect delayed [Unknown]
  - Wrong technique in product usage process [Unknown]

NARRATIVE: CASE EVENT DATE: 20240115
